FAERS Safety Report 8829483 (Version 7)
Quarter: 2015Q2

REPORT INFORMATION
  Report Type: Spontaneous
  Country: US (occurrence: US)
  Receive Date: 20121008
  Receipt Date: 20150402
  Transmission Date: 20150821
  Serious: No
  Sender: FDA-Public Use
  Company Number: US-009507513-1210USA003246

PATIENT
  Sex: Male
  Weight: 85.71 kg

DRUGS (1)
  1. PROPECIA [Suspect]
     Active Substance: FINASTERIDE
     Indication: ANDROGENETIC ALOPECIA
     Dosage: 1 MG, UNK
     Route: 048
     Dates: start: 1998, end: 2009

REACTIONS (23)
  - Social phobia [Not Recovered/Not Resolved]
  - Dystonia [Unknown]
  - Blood cholesterol increased [Unknown]
  - Blood testosterone decreased [Unknown]
  - Erectile dysfunction [Not Recovered/Not Resolved]
  - Anxiety [Not Recovered/Not Resolved]
  - Steroid therapy [Unknown]
  - Adenotonsillectomy [Unknown]
  - Sexual dysfunction [Not Recovered/Not Resolved]
  - Depression [Not Recovered/Not Resolved]
  - Insomnia [Unknown]
  - Testicular failure [Unknown]
  - Liver function test abnormal [Unknown]
  - Dyslipidaemia [Unknown]
  - Testicular atrophy [Unknown]
  - Loss of libido [Not Recovered/Not Resolved]
  - Hypogonadism [Unknown]
  - Flushing [Unknown]
  - Varicocele [Unknown]
  - Haemorrhoids [Unknown]
  - Headache [Unknown]
  - Arterial insufficiency [Unknown]
  - Wisdom teeth removal [Unknown]

NARRATIVE: CASE EVENT DATE: 200309
